FAERS Safety Report 6822539-1 (Version None)
Quarter: 2010Q3

REPORT INFORMATION
  Report Type: 
  Country: None (occurrence: None)
  Receive Date: 20100708
  Receipt Date: 20100623
  Transmission Date: 20110219
  Serious: Yes (Other)
  Sender: FDA-Public Use
  Company Number: FR-SANOFI-AVENTIS-2010SA024271

PATIENT
  Sex: Male

DRUGS (1)
  1. NASACORT [Suspect]
     Indication: PRODUCT USED FOR UNKNOWN INDICATION
     Dosage: DOSE:3 UNIT(S)
     Route: 045

REACTIONS (5)
  - HAEMORRHAGE [None]
  - OEDEMA [None]
  - OVERDOSE [None]
  - TONGUE PARALYSIS [None]
  - VIITH NERVE PARALYSIS [None]
